FAERS Safety Report 13551911 (Version 2)
Quarter: 2017Q2

REPORT INFORMATION
  Report Type: Spontaneous
  Country: DE (occurrence: DE)
  Receive Date: 20170516
  Receipt Date: 20170608
  Transmission Date: 20170830
  Serious: Yes (Other)
  Sender: FDA-Public Use
  Company Number: GXKR2017DE002716

PATIENT
  Age: 16 Month
  Sex: Female

DRUGS (1)
  1. MOMETAHEXAL [Suspect]
     Active Substance: MOMETASONE
     Indication: NASAL POLYPS
     Dosage: 1 DF, QD
     Route: 045
     Dates: start: 20170308, end: 20170505

REACTIONS (4)
  - Aphthous ulcer [Recovered/Resolved]
  - Drug ineffective [Unknown]
  - Oral candidiasis [Recovered/Resolved]
  - Drug administered to patient of inappropriate age [Unknown]

NARRATIVE: CASE EVENT DATE: 20170308
